FAERS Safety Report 4831723-8 (Version None)
Quarter: 2005Q4

REPORT INFORMATION
  Report Type: 
  Country: None (occurrence: None)
  Receive Date: 20051118
  Receipt Date: 20051114
  Transmission Date: 20060501
  Serious: Yes (Hospitalization)
  Sender: FDA-Public Use
  Company Number: DE-AVENTIS-200512600DE

PATIENT
  Age: 64 Year
  Sex: Male

DRUGS (2)
  1. AMARYL [Suspect]
     Indication: DIABETES MELLITUS
     Route: 048
     Dates: start: 20020101
  2. AMARYL [Suspect]
     Route: 048
     Dates: start: 20050101

REACTIONS (5)
  - BLOOD DISORDER [None]
  - HAEMATEMESIS [None]
  - HEPATIC CIRRHOSIS [None]
  - MELAENA [None]
  - OESOPHAGEAL VARICES HAEMORRHAGE [None]
